FAERS Safety Report 6651724-7 (Version None)
Quarter: 2010Q1

REPORT INFORMATION
  Report Type: 
  Country: None (occurrence: None)
  Receive Date: 20100325
  Receipt Date: 20100319
  Transmission Date: 20100710
  Serious: Yes (Hospitalization, Other)
  Sender: FDA-Public Use
  Company Number: US-MERCK-0808USA04946

PATIENT
  Age: 81 Year
  Sex: Female
  Weight: 50 kg

DRUGS (8)
  1. FOSAMAX [Suspect]
     Indication: OSTEOPOROSIS
     Route: 048
     Dates: end: 20090224
  2. TYLENOL (CAPLET) [Concomitant]
     Route: 048
  3. PRILOSEC [Concomitant]
     Route: 048
  4. NORVASC [Concomitant]
     Route: 065
  5. DIOVAN [Concomitant]
     Route: 065
  6. SENNOSIDES [Concomitant]
     Route: 065
  7. METAMUCIL-2 [Concomitant]
     Route: 065
  8. CALCIUM (UNSPECIFIED) [Concomitant]
     Route: 065

REACTIONS (24)
  - ACTINIC KERATOSIS [None]
  - ANXIETY [None]
  - ARTHRALGIA [None]
  - BACK PAIN [None]
  - BONE DISORDER [None]
  - CATARACT [None]
  - CENTRAL NERVOUS SYSTEM LESION [None]
  - CEREBROVASCULAR ACCIDENT [None]
  - DEAFNESS [None]
  - DEPRESSION [None]
  - GAIT DISTURBANCE [None]
  - GROIN PAIN [None]
  - HAEMORRHAGE [None]
  - HYPERGLYCAEMIA [None]
  - INCREASED TENDENCY TO BRUISE [None]
  - NAUSEA [None]
  - OSTEONECROSIS [None]
  - OSTEOPENIA [None]
  - OSTEOPOROSIS [None]
  - PAIN [None]
  - PNEUMONIA [None]
  - SPINAL COMPRESSION FRACTURE [None]
  - TREMOR [None]
  - WEIGHT DECREASED [None]
